FAERS Safety Report 16290341 (Version 1)
Quarter: 2019Q2

REPORT INFORMATION
  Report Type: Report from Study
  Country: AU (occurrence: AU)
  Receive Date: 20190509
  Receipt Date: 20190509
  Transmission Date: 20190711
  Serious: Yes (Other)
  Sender: FDA-Public Use
  Company Number: AU-ADIENNEP-2019AD000194

PATIENT
  Age: 30 Year
  Sex: Female

DRUGS (5)
  1. FLUDARABINE [Suspect]
     Active Substance: FLUDARABINE PHOSPHATE
     Indication: STEM CELL TRANSPLANT
     Dosage: 40 MG/M2 DAILY
  2. VALACICLOVIR [Concomitant]
     Active Substance: VALACYCLOVIR HYDROCHLORIDE
     Indication: PROPHYLAXIS
     Dosage: 2 DOSAGES 500 MG DAILY
     Route: 048
  3. THYMOGLOBULIN [Suspect]
     Active Substance: LAPINE T-LYMPHOCYTE IMMUNE GLOBULIN
     Indication: STEM CELL TRANSPLANT
     Dosage: 1.5 MG/KG DAILY
  4. PARACETAMOL [Concomitant]
     Active Substance: ACETAMINOPHEN
     Indication: PREMEDICATION
     Dosage: 1 G
     Route: 048
  5. THIOTEPA. [Suspect]
     Active Substance: THIOTEPA
     Indication: STEM CELL TRANSPLANT
     Dosage: 5 MG/KG DAILY

REACTIONS (5)
  - Graft versus host disease in gastrointestinal tract [Unknown]
  - Post transplant lymphoproliferative disorder [Unknown]
  - Microsporidia infection [Unknown]
  - Cachexia [Unknown]
  - Gastroenteritis norovirus [Unknown]
